FAERS Safety Report 25385457 (Version 1)
Quarter: 2025Q2

REPORT INFORMATION
  Report Type: Spontaneous
  Country: US (occurrence: None)
  Receive Date: 20250601
  Receipt Date: 20250601
  Transmission Date: 20250716
  Serious: Yes (Disabling)
  Sender: FDA-CTU
  Company Number: None

PATIENT
  Sex: Male

DRUGS (4)
  1. ALEVE [Suspect]
     Active Substance: NAPROXEN SODIUM
  2. PANTOPRAZOLE [Suspect]
     Active Substance: PANTOPRAZOLE
  3. VITAMINS [Suspect]
     Active Substance: VITAMINS
  4. WATER [Suspect]
     Active Substance: WATER

REACTIONS (3)
  - Therapy interrupted [None]
  - Physical disability [None]
  - Mental disorder [None]

NARRATIVE: CASE EVENT DATE: 20250601
